FAERS Safety Report 6493920-8 (Version None)
Quarter: 2009Q4

REPORT INFORMATION
  Report Type: 
  Country: None (occurrence: None)
  Receive Date: 20091214
  Receipt Date: 20081124
  Transmission Date: 20100525
  Serious: No
  Sender: FDA-Public Use
  Company Number: US-BRISTOL-MYERS SQUIBB COMPANY-14418214

PATIENT
  Age: 41 Year
  Sex: Male

DRUGS (2)
  1. ABILIFY [Suspect]
     Dosage: DOSAGE DECREASED TO 2MG.
  2. EFFEXOR [Concomitant]

REACTIONS (1)
  - ABDOMINAL DISTENSION [None]
